FAERS Safety Report 17397002 (Version 3)
Quarter: 2020Q1

REPORT INFORMATION
  Report Type: Report from Study
  Country: JP (occurrence: JP)
  Receive Date: 20200210
  Receipt Date: 20200327
  Transmission Date: 20200409
  Serious: Yes (Other)
  Sender: FDA-Public Use
  Company Number: JP-PFIZER INC-2020025717

PATIENT
  Age: 47 Year
  Sex: Male
  Weight: 69 kg

DRUGS (2)
  1. XELJANZ [Suspect]
     Active Substance: TOFACITINIB CITRATE
     Indication: COLITIS ULCERATIVE
     Dosage: 10 MG, 2X/DAY
     Route: 048
     Dates: start: 20190108, end: 20190619
  2. XELJANZ [Suspect]
     Active Substance: TOFACITINIB CITRATE
     Dosage: 5 MG, 2X/DAY
     Route: 048
     Dates: start: 20190620

REACTIONS (6)
  - Aspartate aminotransferase increased [Unknown]
  - Blood lactate dehydrogenase increased [Unknown]
  - Fall [Unknown]
  - Blood glucose increased [Unknown]
  - Rib fracture [Recovered/Resolved]
  - Spinal subdural haematoma [Not Recovered/Not Resolved]

NARRATIVE: CASE EVENT DATE: 201909
